FAERS Safety Report 7784850-X (Version None)
Quarter: 2011Q3

REPORT INFORMATION
  Report Type: 
  Country: None (occurrence: None)
  Receive Date: 20110928
  Receipt Date: 20110922
  Transmission Date: 20111222
  Serious: Yes (Other)
  Sender: FDA-Public Use
  Company Number: FR-PFIZER INC-2011150558

PATIENT
  Age: 41 Year
  Sex: Female
  Weight: 50 kg

DRUGS (4)
  1. LUTENYL [Suspect]
     Dosage: UNK
     Dates: start: 20040101, end: 20110510
  2. SERTRALINE HYDROCHLORIDE [Suspect]
     Dosage: 50 MG, ALTERNATE DAY
     Route: 048
     Dates: start: 20110609
  3. SERTRALINE HYDROCHLORIDE [Suspect]
     Indication: MAJOR DEPRESSION
     Dosage: 50 MG, 1X/DAY
     Route: 048
     Dates: start: 20110510
  4. LEVOTHYROXINE SODIUM [Concomitant]
     Indication: HYPOTHYROIDISM

REACTIONS (3)
  - PSYCHOMOTOR HYPERACTIVITY [None]
  - HYPOMANIA [None]
  - HAEMATOMA [None]
